FAERS Safety Report 7899504-9 (Version None)
Quarter: 2011Q4

REPORT INFORMATION
  Report Type: 
  Country: None (occurrence: None)
  Receive Date: 20111107
  Receipt Date: 20110915
  Transmission Date: 20120403
  Serious: No
  Sender: FDA-Public Use
  Company Number: US-AMGEN-USASP2011047537

PATIENT
  Age: 40 Year
  Sex: Female

DRUGS (1)
  1. ENBREL [Suspect]
     Indication: RHEUMATOID ARTHRITIS
     Dosage: 50 MG, QWK
     Dates: start: 20110423

REACTIONS (5)
  - RASH [None]
  - DRUG INEFFECTIVE [None]
  - DIARRHOEA [None]
  - RESPIRATORY TRACT INFECTION [None]
  - RHEUMATOID NODULE [None]
